FAERS Safety Report 7992314-3 (Version None)
Quarter: 2011Q4

REPORT INFORMATION
  Report Type: 
  Country: None (occurrence: None)
  Receive Date: 20111219
  Receipt Date: 20110216
  Transmission Date: 20120403
  Serious: No
  Sender: FDA-Public Use
  Company Number: US-ASTRAZENECA-2011SE08922

PATIENT
  Age: 62 Year
  Sex: Female
  Weight: 158.8 kg

DRUGS (10)
  1. PROZAC [Concomitant]
  2. NOVOLIN INSULIN [Concomitant]
  3. COUMADIN [Concomitant]
  4. CRESTOR [Suspect]
     Indication: HYPERCHOLESTEROLAEMIA
     Route: 048
     Dates: start: 20070101
  5. FENOFIBRATE [Concomitant]
  6. MAG OXIDE [Concomitant]
  7. RENAL SALT GEL [Concomitant]
  8. METOPROLOL [Concomitant]
  9. PROTONIX [Concomitant]
  10. NEURONTIN [Concomitant]

REACTIONS (1)
  - DIALYSIS [None]
